FAERS Safety Report 15599598 (Version 4)
Quarter: 2018Q4

REPORT INFORMATION
  Report Type: Spontaneous
  Country: JP (occurrence: JP)
  Receive Date: 20181108
  Receipt Date: 20181207
  Transmission Date: 20190205
  Serious: Yes (Hospitalization)
  Sender: FDA-Public Use
  Company Number: JP-NOVOPROD-630564

PATIENT
  Age: 38 Year
  Sex: Female
  Weight: 61.5 kg

DRUGS (10)
  1. NOVORAPID [Suspect]
     Active Substance: INSULIN ASPART
     Dosage: 12 U, QD
     Route: 058
     Dates: start: 20131126
  2. LEVEMIR [Suspect]
     Active Substance: INSULIN DETEMIR
     Dosage: 24 U, QD
     Route: 058
     Dates: start: 20131122
  3. LEVEMIR [Suspect]
     Active Substance: INSULIN DETEMIR
     Dosage: UNK
     Route: 058
     Dates: end: 20131214
  4. NOVORAPID [Suspect]
     Active Substance: INSULIN ASPART
     Dosage: 44 U, QD
     Route: 058
     Dates: start: 20131122
  5. LEVEMIR [Suspect]
     Active Substance: INSULIN DETEMIR
     Dosage: 22 U, QD
     Route: 058
     Dates: start: 20131129, end: 20131209
  6. NOVORAPID [Suspect]
     Active Substance: INSULIN ASPART
     Indication: FULMINANT TYPE 1 DIABETES MELLITUS
     Dosage: 16 U, QD
     Route: 058
     Dates: start: 20131015
  7. LEVEMIR [Suspect]
     Active Substance: INSULIN DETEMIR
     Indication: FULMINANT TYPE 1 DIABETES MELLITUS
     Dosage: 4 U, QD
     Route: 058
     Dates: start: 20131015
  8. LEVEMIR [Suspect]
     Active Substance: INSULIN DETEMIR
     Dosage: 8 U, QD
     Route: 058
     Dates: start: 20131126
  9. NOVORAPID [Suspect]
     Active Substance: INSULIN ASPART
     Dosage: UNK
     Route: 058
     Dates: end: 20131214
  10. NOVORAPID [Suspect]
     Active Substance: INSULIN ASPART
     Dosage: 14 U, QD
     Route: 058
     Dates: start: 20131129, end: 20131209

REACTIONS (6)
  - Exposure during pregnancy [Recovered/Resolved]
  - Drug hypersensitivity [Recovered/Resolved]
  - Diabetes mellitus inadequate control [Unknown]
  - Diabetic ketoacidosis [Recovered/Resolved]
  - Premature labour [Unknown]
  - Premature delivery [Unknown]

NARRATIVE: CASE EVENT DATE: 20131209
